FAERS Safety Report 6456851-5 (Version None)
Quarter: 2009Q4

REPORT INFORMATION
  Report Type: 
  Country: None (occurrence: None)
  Receive Date: 20091125
  Receipt Date: 20091116
  Transmission Date: 20100525
  Serious: Yes (Other)
  Sender: FDA-Public Use
  Company Number: US-CELGENEUS-163-21880-08120395

PATIENT
  Sex: Male

DRUGS (13)
  1. REVLIMID [Suspect]
     Indication: MYELOFIBROSIS
     Route: 048
     Dates: start: 20080613, end: 20081001
  2. REVLIMID [Suspect]
     Indication: MYELOPROLIFERATIVE DISORDER
  3. REVLIMID [Suspect]
  4. ARANESP [Concomitant]
     Indication: MYELOFIBROSIS
     Route: 058
     Dates: start: 20090706, end: 20090706
  5. ARANESP [Concomitant]
     Route: 058
     Dates: start: 20090706, end: 20090706
  6. BENICAR [Concomitant]
     Indication: DRUG USE FOR UNKNOWN INDICATION
     Route: 048
  7. MULTI-VITAMINS [Concomitant]
     Indication: DRUG USE FOR UNKNOWN INDICATION
     Route: 048
  8. ASPIRIN [Concomitant]
     Indication: DRUG USE FOR UNKNOWN INDICATION
     Route: 048
  9. GLUCOSAMINE [Concomitant]
     Indication: DRUG USE FOR UNKNOWN INDICATION
     Dosage: 500-400MG
     Route: 048
  10. FUROSEMIDE [Concomitant]
     Indication: DRUG USE FOR UNKNOWN INDICATION
     Route: 048
  11. FUROSEMIDE [Concomitant]
     Route: 048
  12. MIRALAX [Concomitant]
     Indication: DRUG USE FOR UNKNOWN INDICATION
     Route: 065
  13. DARBEPOETIN [Concomitant]
     Indication: DRUG USE FOR UNKNOWN INDICATION
     Route: 058

REACTIONS (15)
  - ANAEMIA [None]
  - ARTHROPATHY [None]
  - BALANCE DISORDER [None]
  - CARDIAC FAILURE CONGESTIVE [None]
  - CATARACT [None]
  - CONSTIPATION [None]
  - COUGH [None]
  - ESSENTIAL TREMOR [None]
  - HEARING IMPAIRED [None]
  - HYPOAESTHESIA [None]
  - MEMORY IMPAIRMENT [None]
  - MENTAL RETARDATION [None]
  - MUSCLE SPASMS [None]
  - THERMAL BURN [None]
  - WEIGHT DECREASED [None]
